FAERS Safety Report 21205199 (Version 1)
Quarter: 2022Q3

REPORT INFORMATION
  Report Type: Report from Study
  Country: DE (occurrence: DE)
  Receive Date: 20220812
  Receipt Date: 20220812
  Transmission Date: 20221027
  Serious: Yes (Other)
  Sender: FDA-Public Use
  Company Number: DE-TEVA-2022-DE-2062333

PATIENT
  Age: 52 Year
  Sex: Female

DRUGS (1)
  1. COPAXONE [Suspect]
     Active Substance: GLATIRAMER ACETATE
     Indication: Multiple sclerosis
     Dosage: FORM STRENGTH: 40 MG, THREE TIMES A WEEK
     Dates: start: 20150809

REACTIONS (2)
  - Haemorrhagic diathesis [Unknown]
  - Contusion [Unknown]

NARRATIVE: CASE EVENT DATE: 20150101
